FAERS Safety Report 25545517 (Version 2)
Quarter: 2025Q3

REPORT INFORMATION
  Report Type: Spontaneous
  Country: AR (occurrence: AR)
  Receive Date: 20250711
  Receipt Date: 20250806
  Transmission Date: 20251021
  Serious: Yes (Other)
  Sender: PFIZER
  Company Number: AR-PFIZER INC-202500140165

PATIENT
  Age: 55 Year
  Sex: Male

DRUGS (1)
  1. LORLATINIB [Suspect]
     Active Substance: LORLATINIB
     Indication: Lung cancer metastatic
     Dosage: 100 MG, DAILY
     Dates: start: 20230111

REACTIONS (2)
  - Syncope [Unknown]
  - Cardiac pacemaker insertion [Unknown]
